FAERS Safety Report 9601694 (Version 1)
Quarter: 2013Q4

REPORT INFORMATION
  Report Type: Spontaneous
  Country: US (occurrence: None)
  Receive Date: 20131004
  Receipt Date: 20131004
  Transmission Date: 20140711
  Serious: Yes (Hospitalization)
  Sender: FDA-Public Use
  Company Number: None

PATIENT
  Age: 55 Year
  Sex: Male

DRUGS (1)
  1. INSULIN [Suspect]
     Dates: start: 20130820

REACTIONS (3)
  - Hypoglycaemia [None]
  - Incorrect dose administered [None]
  - Medication error [None]
